FAERS Safety Report 24918526 (Version 1)
Quarter: 2025Q1

REPORT INFORMATION
  Report Type: Spontaneous
  Country: DE (occurrence: DE)
  Receive Date: 20250203
  Receipt Date: 20250203
  Transmission Date: 20250408
  Serious: Yes (Hospitalization, Other)
  Sender: ALEXION PHARMACEUTICALS
  Company Number: None

PATIENT
  Age: 59 Year
  Weight: 98 kg

DRUGS (1)
  1. XIGDUO XR [Suspect]
     Active Substance: DAPAGLIFLOZIN PROPANEDIOL\METFORMIN HYDROCHLORIDE
     Indication: Diabetes mellitus

REACTIONS (4)
  - Fournier^s gangrene [Recovering/Resolving]
  - General physical health deterioration [Unknown]
  - Urinary hesitation [Unknown]
  - Scrotal swelling [Unknown]
